FAERS Safety Report 12609608 (Version 1)
Quarter: 2016Q3

REPORT INFORMATION
  Report Type: Spontaneous
  Country: US (occurrence: None)
  Receive Date: 20160729
  Receipt Date: 20160729
  Transmission Date: 20161109
  Serious: Yes (Disabling)
  Sender: FDA-Public Use
  Company Number: None

PATIENT
  Age: 29 Year
  Sex: Female
  Weight: 77.11 kg

DRUGS (4)
  1. IBUPROFEN. [Concomitant]
     Active Substance: IBUPROFEN
  2. ONE-A-DAY MULTIVITAMIN [Concomitant]
  3. VITAMIN D [Concomitant]
     Active Substance: CHOLECALCIFEROL
  4. AVELOX [Suspect]
     Active Substance: MOXIFLOXACIN HYDROCHLORIDE
     Indication: PILONIDAL CYST
     Dosage: ONCE A DAY TAKEN BY MOUTH
     Route: 048
     Dates: start: 20131118

REACTIONS (5)
  - Joint dislocation [None]
  - Condition aggravated [None]
  - Arthralgia [None]
  - Ligament disorder [None]
  - Tendon disorder [None]

NARRATIVE: CASE EVENT DATE: 20131118
